FAERS Safety Report 8259528-9 (Version None)
Quarter: 2012Q2

REPORT INFORMATION
  Report Type: 
  Country: None (occurrence: None)
  Receive Date: 20120404
  Receipt Date: 20120328
  Transmission Date: 20120825
  Serious: Yes (Hospitalization)
  Sender: FDA-Public Use
  Company Number: DE-MERCK-1202DEU00022

PATIENT
  Age: 60 Year
  Sex: Male
  Weight: 90 kg

DRUGS (17)
  1. BUTYLSCOPOLAMINE BROMIDE [Concomitant]
     Route: 065
  2. JANUVIA [Suspect]
     Route: 048
  3. ASPIRIN [Concomitant]
     Route: 065
  4. NITROGLYCERIN [Concomitant]
     Route: 055
  5. JANUVIA [Suspect]
     Indication: TYPE 2 DIABETES MELLITUS
     Route: 048
     Dates: start: 20120112
  6. ZOCOR [Concomitant]
     Route: 048
  7. NASONEX [Concomitant]
     Route: 065
  8. TICAGRELOR [Suspect]
     Route: 048
     Dates: start: 20110711
  9. RABEPRAZOLE SODIUM [Concomitant]
     Route: 065
     Dates: start: 20110301
  10. BUDESONIDE AND FORMOTEROL FUMARATE [Concomitant]
     Route: 055
  11. TETRAZEPAM [Concomitant]
     Indication: MUSCLE TIGHTNESS
     Route: 065
  12. IVABRADINE HYDROCHLORIDE [Concomitant]
     Route: 065
  13. DESLORATADINE [Concomitant]
     Route: 065
  14. POLYETHYLENE GLYCOL 3350 AND POTASSIUM CHLORIDE AND SODIUM BICARBONATE [Concomitant]
     Route: 048
  15. HYDROCHLOROTHIAZIDE [Concomitant]
     Route: 048
  16. LEVOTHYROXINE SODIUM [Concomitant]
     Route: 065
  17. MAGNESIUM (UNSPECIFIED) [Concomitant]
     Route: 048

REACTIONS (5)
  - DIVERTICULUM [None]
  - INTESTINAL HAEMORRHAGE [None]
  - GASTROINTESTINAL DISORDER [None]
  - HAEMORRHOIDAL HAEMORRHAGE [None]
  - DRUG INTERACTION [None]
